FAERS Safety Report 9106949 (Version 1)
Quarter: 2013Q1

REPORT INFORMATION
  Report Type: Spontaneous
  Country: US (occurrence: US)
  Receive Date: 20130221
  Receipt Date: 20130221
  Transmission Date: 20140127
  Serious: Yes (Hospitalization)
  Sender: FDA-Public Use
  Company Number: US-ASTRAZENECA-2013SE10706

PATIENT
  Age: 39 Year
  Sex: Male
  Weight: 74.4 kg

DRUGS (2)
  1. CRESTOR [Suspect]
     Indication: BLOOD CHOLESTEROL INCREASED
     Route: 048
     Dates: start: 20130205, end: 20130211
  2. ANTIBIOTICS [Concomitant]

REACTIONS (3)
  - Urticaria [Recovering/Resolving]
  - Gastrooesophageal reflux disease [Unknown]
  - Weight decreased [Unknown]
